FAERS Safety Report 8820793 (Version 1)
Quarter: 2012Q4

REPORT INFORMATION
  Report Type: 
  Country: FR (occurrence: FR)
  Receive Date: 20121002
  Receipt Date: 20121002
  Transmission Date: 20130627
  Serious: Yes (Other)
  Sender: FDA-Public Use
  Company Number: FR-JNJFOC-20120909946

PATIENT
  Age: 13 Year
  Sex: Male

DRUGS (1)
  1. RISPERDAL CONSTA [Suspect]
     Indication: PSYCHOTIC DISORDER
     Route: 030
     Dates: start: 201207, end: 2012

REACTIONS (5)
  - Psychomotor hyperactivity [Unknown]
  - Akathisia [Unknown]
  - Logorrhoea [Unknown]
  - Off label use [Unknown]
  - Injury [Unknown]
